FAERS Safety Report 4372721-0 (Version None)
Quarter: 2004Q2

REPORT INFORMATION
  Report Type: 
  Country: None (occurrence: None)
  Receive Date: 20040526
  Receipt Date: 20040519
  Transmission Date: 20050107
  Serious: Yes (Death)
  Sender: FDA-Public Use
  Company Number: 2004UW10601

PATIENT
  Age: 31 Year
  Sex: Male

DRUGS (2)
  1. SEROQUEL [Suspect]
  2. DEPAKOTE [Suspect]

REACTIONS (1)
  - DEATH [None]
